FAERS Safety Report 7367681-4 (Version None)
Quarter: 2011Q1

REPORT INFORMATION
  Report Type: 
  Country: None (occurrence: None)
  Receive Date: 20110322
  Receipt Date: 20101215
  Transmission Date: 20110831
  Serious: Yes (Life-Threatening, Hospitalization, Other)
  Sender: FDA-Public Use
  Company Number: CA-BAYER-2011-024344

PATIENT
  Age: 65 Year
  Sex: Male
  Weight: 62 kg

DRUGS (7)
  1. ATROVENT [Concomitant]
  2. PANTOLOC [Concomitant]
  3. METOPROLOL [Concomitant]
  4. SANDOSTATIN LAR [Concomitant]
  5. TOLBUTAMIDE [Concomitant]
  6. NEXAVAR [Suspect]
     Indication: PRODUCT USED FOR UNKNOWN INDICATION
     Dosage: 800 MG, QD
     Route: 048
  7. PREDNISONE [Concomitant]

REACTIONS (1)
  - PULMONARY TUBERCULOSIS [None]
